FAERS Safety Report 13901028 (Version 1)
Quarter: 2017Q3

REPORT INFORMATION
  Report Type: Spontaneous
  Country: CA (occurrence: CA)
  Receive Date: 20170824
  Receipt Date: 20170824
  Transmission Date: 20171127
  Serious: Yes (Hospitalization)
  Sender: FDA-Public Use
  Company Number: CA-TEVA-799291ACC

PATIENT
  Age: 52 Year
  Sex: Male
  Weight: 74.91 kg

DRUGS (2)
  1. SYNTHROID - TAB 50MCG [Concomitant]
  2. GABAPENTIN. [Suspect]
     Active Substance: GABAPENTIN
     Indication: SCIATICA
     Dosage: 900 MILLIGRAM DAILY;
     Route: 048

REACTIONS (1)
  - Psychotic disorder [Recovered/Resolved]
